FAERS Safety Report 13028489 (Version 2)
Quarter: 2016Q4

REPORT INFORMATION
  Report Type: Spontaneous
  Country: US (occurrence: US)
  Receive Date: 20161214
  Receipt Date: 20161229
  Transmission Date: 20170207
  Serious: Yes (Hospitalization, Other)
  Sender: FDA-Public Use
  Company Number: US-AMGEN-USASP2016174720

PATIENT
  Age: 63 Year
  Sex: Male
  Weight: 86.6 kg

DRUGS (1)
  1. REPATHA [Suspect]
     Active Substance: EVOLOCUMAB
     Indication: TYPE IIA HYPERLIPIDAEMIA
     Dosage: 420 MG, QMO
     Route: 058
     Dates: start: 201610

REACTIONS (2)
  - Road traffic accident [Recovered/Resolved]
  - Injury [Recovering/Resolving]

NARRATIVE: CASE EVENT DATE: 20161203
